FAERS Safety Report 17387867 (Version 1)
Quarter: 2020Q1

REPORT INFORMATION
  Report Type: Spontaneous
  Country: US (occurrence: US)
  Receive Date: 20200122
  Receipt Date: 20200122
  Transmission Date: 20200409
  Serious: Yes (Death)
  Sender: FDA-Public Use
  Company Number: None

PATIENT
  Age: 85 Year
  Sex: Female
  Weight: 86.3 kg

DRUGS (2)
  1. ETOPOSIDE (VP-16) [Suspect]
     Active Substance: ETOPOSIDE
     Dates: end: 20191228
  2. CISPLATIN. [Suspect]
     Active Substance: CISPLATIN
     Dates: end: 20191226

REACTIONS (4)
  - Pneumonia [None]
  - Dyspnoea [None]
  - Disease complication [None]
  - Atrial fibrillation [None]

NARRATIVE: CASE EVENT DATE: 20200111
